FAERS Safety Report 9152759 (Version 2)
Quarter: 2013Q1

REPORT INFORMATION
  Report Type: Report from Study
  Country: GW (occurrence: GW)
  Receive Date: 20130308
  Receipt Date: 20130329
  Transmission Date: 20140127
  Serious: Yes (Death, Hospitalization)
  Sender: FDA-Public Use
  Company Number: GW-ABBOTT-13P-071-1059656-00

PATIENT
  Age: 43 Year
  Sex: Female

DRUGS (6)
  1. KALETRA TABLETS 200/50 [Suspect]
     Indication: HIV INFECTION
     Route: 048
     Dates: start: 20121113
  2. ZIDOVUDINE [Concomitant]
     Indication: HIV INFECTION
     Route: 048
     Dates: start: 20121113, end: 20130127
  3. LAMIVUDINE [Concomitant]
     Indication: HIV INFECTION
     Route: 058
     Dates: start: 20121113
  4. COTRIMOXAZOLE [Concomitant]
     Indication: PROPHYLAXIS
     Route: 048
     Dates: start: 20121105
  5. FOLIC ACID [Concomitant]
     Indication: VITAMIN SUPPLEMENTATION
     Route: 058
     Dates: start: 20121105
  6. FLUCONAZOLE [Concomitant]
     Indication: PROPHYLAXIS
     Route: 048
     Dates: start: 20121105

REACTIONS (6)
  - Death [Fatal]
  - Nausea [Fatal]
  - Vomiting [Fatal]
  - Diarrhoea [Fatal]
  - Anaemia [Not Recovered/Not Resolved]
  - Mouth ulceration [Not Recovered/Not Resolved]
